FAERS Safety Report 8553431-2 (Version None)
Quarter: 2012Q2

REPORT INFORMATION
  Report Type: 
  Country: None (occurrence: None)
  Receive Date: 20120417
  Receipt Date: 20110324
  Transmission Date: 20120825
  Serious: Yes (Other)
  Sender: FDA-Public Use
  Company Number: 11-161

PATIENT
  Age: 61 Year
  Sex: Male
  Weight: 100 kg

DRUGS (6)
  1. NORVASC [Concomitant]
  2. PREDNISONE TAB [Concomitant]
  3. ALEVE [Suspect]
     Indication: BACK PAIN
     Dosage: 220MG, ORAL
     Route: 048
     Dates: start: 20090419, end: 20090424
  4. AVAPRO [Concomitant]
  5. ALEVE [Suspect]
     Dosage: 220MG, ORAL
     Route: 048
     Dates: start: 20090701
  6. ZOCOR [Concomitant]

REACTIONS (1)
  - DRUG HYPERSENSITIVITY [None]
